FAERS Safety Report 9493221 (Version 5)
Quarter: 2015Q2

REPORT INFORMATION
  Report Type: Report from Study
  Country: JP (occurrence: JP)
  Receive Date: 20130902
  Receipt Date: 20150601
  Transmission Date: 20150821
  Serious: Yes (Other)
  Sender: FDA-Public Use
  Company Number: PHHY2013JP094706

PATIENT
  Age: 38 Year
  Sex: Male

DRUGS (41)
  1. SERENACE [Suspect]
     Active Substance: HALOPERIDOL
     Dosage: 3 MG, QD
     Route: 048
     Dates: start: 20130312
  2. MAGLAX [Concomitant]
     Active Substance: MAGNESIUM OXIDE
     Indication: PRODUCT USED FOR UNKNOWN INDICATION
     Dosage: 1000 MG, UNK
     Route: 048
     Dates: end: 20130404
  3. BENZALIN [Concomitant]
     Active Substance: NITRAZEPAM
     Indication: SCHIZOPHRENIA, UNDIFFERENTIATED TYPE
     Dosage: 10 MG, UNK
     Route: 048
     Dates: end: 20130303
  4. CLOZARIL [Suspect]
     Active Substance: CLOZAPINE
     Dosage: 550 MG, DAILY
     Route: 048
     Dates: start: 20130426, end: 20130522
  5. AKINETON [Suspect]
     Active Substance: BIPERIDEN HYDROCHLORIDE
     Dosage: 6 MG, QD
     Route: 048
     Dates: start: 20130328, end: 20130613
  6. AKINETON [Suspect]
     Active Substance: BIPERIDEN HYDROCHLORIDE
     Dosage: 6 MG, QD
     Route: 048
     Dates: start: 20130628
  7. CERCINE [Concomitant]
     Active Substance: DIAZEPAM
     Dosage: UNK
     Route: 065
  8. MAGLAX [Concomitant]
     Active Substance: MAGNESIUM OXIDE
     Dosage: UNK
     Route: 065
  9. CLOZARIL [Suspect]
     Active Substance: CLOZAPINE
     Dosage: 600 MG, QD
     Route: 048
     Dates: start: 20130523
  10. AKINETON [Suspect]
     Active Substance: BIPERIDEN HYDROCHLORIDE
     Indication: SALIVARY HYPERSECRETION
     Dosage: 3 MG, QD
     Route: 048
     Dates: end: 20130320
  11. CLOZARIL [Suspect]
     Active Substance: CLOZAPINE
     Dosage: 100 MG, QD
     Route: 048
     Dates: start: 20130309, end: 20130313
  12. AKINETON [Suspect]
     Active Substance: BIPERIDEN HYDROCHLORIDE
     Dosage: 5 MG, QD
     Route: 048
     Dates: start: 20130325, end: 20130327
  13. MAGLAX [Concomitant]
     Active Substance: MAGNESIUM OXIDE
     Dosage: 1500 MG, UNK
     Route: 048
     Dates: start: 20130405, end: 20130425
  14. CLOZARIL [Suspect]
     Active Substance: CLOZAPINE
     Dosage: 25 MG, QD
     Route: 048
     Dates: start: 20130301, end: 20130303
  15. CLOZARIL [Suspect]
     Active Substance: CLOZAPINE
     Dosage: 125 MG, DAILY
     Route: 048
     Dates: start: 20130314, end: 20130317
  16. AKINETON [Suspect]
     Active Substance: BIPERIDEN HYDROCHLORIDE
     Dosage: 4 MG, QD
     Route: 048
     Dates: start: 20130321, end: 20130324
  17. SERENACE [Suspect]
     Active Substance: HALOPERIDOL
     Dosage: 9 MG, QD
     Route: 048
     Dates: start: 20130307, end: 20130311
  18. CERCINE [Concomitant]
     Active Substance: DIAZEPAM
     Dosage: 7 MG, UNK
     Route: 048
     Dates: start: 20130418, end: 20130501
  19. CERCINE [Concomitant]
     Active Substance: DIAZEPAM
     Dosage: 2 MG, UNK
     Route: 048
     Dates: start: 20130816
  20. RISPERDAL [Concomitant]
     Active Substance: RISPERIDONE
     Indication: SCHIZOPHRENIA, UNDIFFERENTIATED TYPE
     Dosage: 2 MG, UNK
     Route: 048
     Dates: end: 20130307
  21. CLOZARIL [Suspect]
     Active Substance: CLOZAPINE
     Dosage: 75 MG, DAILY
     Route: 048
     Dates: start: 20130307, end: 20130308
  22. CLOZARIL [Suspect]
     Active Substance: CLOZAPINE
     Dosage: 175 MG, DAILY
     Route: 048
     Dates: start: 20130321, end: 20130324
  23. CLOZARIL [Suspect]
     Active Substance: CLOZAPINE
     Dosage: 200 MG, QD
     Route: 048
     Dates: start: 20130325, end: 20130331
  24. CLOZARIL [Suspect]
     Active Substance: CLOZAPINE
     Dosage: 275 MG, DAILY
     Route: 048
     Dates: start: 20130401, end: 20130404
  25. RISPERIDONE TABLETS [Suspect]
     Active Substance: RISPERIDONE
     Indication: PRODUCT USED FOR UNKNOWN INDICATION
     Dosage: UNK
     Route: 048
  26. AKINETON [Suspect]
     Active Substance: BIPERIDEN HYDROCHLORIDE
     Dosage: 5 MG, QD
     Route: 048
     Dates: start: 20130614, end: 20130627
  27. CERCINE [Concomitant]
     Active Substance: DIAZEPAM
     Dosage: 12 MG, UNK
     Route: 048
     Dates: start: 20130321, end: 20130404
  28. CERCINE [Concomitant]
     Active Substance: DIAZEPAM
     Dosage: 10 MG, UNK
     Route: 048
     Dates: start: 20130405, end: 20130417
  29. CERCINE [Concomitant]
     Active Substance: DIAZEPAM
     Dosage: 4 MG, UNK
     Route: 048
     Dates: start: 20130502, end: 20130515
  30. MAGLAX [Concomitant]
     Active Substance: MAGNESIUM OXIDE
     Dosage: 1500 MG, UNK
     Route: 048
     Dates: start: 20130509
  31. MARZULENE-S [Concomitant]
     Active Substance: SODIUM GUALENATE
     Indication: CHRONIC GASTRITIS
     Dosage: 1.5 G, UNK
     Route: 048
  32. CLOZARIL [Suspect]
     Active Substance: CLOZAPINE
     Dosage: 150 MG, QD
     Route: 048
     Dates: start: 20130318, end: 20130320
  33. CLOZARIL [Suspect]
     Active Substance: CLOZAPINE
     Dosage: 400 MG, DAILY
     Route: 048
     Dates: start: 20130409, end: 20130417
  34. CLOZARIL [Suspect]
     Active Substance: CLOZAPINE
     Dosage: 475 MG, DAILY
     Route: 048
     Dates: start: 20130418, end: 20130425
  35. CERCINE [Concomitant]
     Active Substance: DIAZEPAM
     Indication: SCHIZOPHRENIA, UNDIFFERENTIATED TYPE
     Dosage: 15 MG, UNK
     Route: 048
     Dates: end: 20130320
  36. BENZALIN [Concomitant]
     Active Substance: NITRAZEPAM
     Dosage: 5 MG, UNK
     Route: 048
     Dates: end: 20130306
  37. CLOZARIL [Suspect]
     Active Substance: CLOZAPINE
     Indication: SCHIZOPHRENIA
     Dosage: 12.5 MG, QD
     Route: 048
     Dates: start: 20130228, end: 20130228
  38. CLOZARIL [Suspect]
     Active Substance: CLOZAPINE
     Dosage: 50 MG, QD
     Route: 048
     Dates: start: 20130304, end: 20130306
  39. CLOZARIL [Suspect]
     Active Substance: CLOZAPINE
     Dosage: 325 MG, DAILY
     Route: 048
     Dates: start: 20130405, end: 20130408
  40. SERENACE [Suspect]
     Active Substance: HALOPERIDOL
     Indication: SCHIZOPHRENIA, UNDIFFERENTIATED TYPE
     Dosage: 12 MG, QD
     Route: 048
     Dates: end: 20130306
  41. MAGLAX [Concomitant]
     Active Substance: MAGNESIUM OXIDE
     Dosage: 1000 MG, UNK
     Route: 048
     Dates: start: 20130426, end: 20130508

REACTIONS (18)
  - Heart rate increased [Unknown]
  - White blood cell count increased [Recovered/Resolved]
  - White blood cell count increased [Recovered/Resolved]
  - Psychiatric symptom [Unknown]
  - Generalised tonic-clonic seizure [Recovered/Resolved]
  - Neutrophil percentage increased [Recovered/Resolved]
  - Neutrophil percentage increased [Recovered/Resolved]
  - Eosinophil count increased [Not Recovered/Not Resolved]
  - Neutrophil percentage increased [Recovered/Resolved]
  - Suicidal ideation [Recovered/Resolved]
  - Eye movement disorder [Not Recovered/Not Resolved]
  - Neutrophil percentage increased [Recovered/Resolved]
  - Electroencephalogram abnormal [Recovering/Resolving]
  - White blood cell count increased [Recovered/Resolved]
  - White blood cell count increased [Recovered/Resolved]
  - Neutrophil percentage increased [Recovered/Resolved]
  - White blood cell count increased [Recovered/Resolved]
  - Neutrophil percentage increased [Unknown]

NARRATIVE: CASE EVENT DATE: 20130312
